FAERS Safety Report 7512458-X (Version None)
Quarter: 2011Q2

REPORT INFORMATION
  Report Type: 
  Country: None (occurrence: None)
  Receive Date: 20110531
  Receipt Date: 20110525
  Transmission Date: 20111010
  Serious: Yes (Hospitalization, Other)
  Sender: FDA-Public Use
  Company Number: US-PFIZER INC-2011105728

PATIENT
  Age: 72 Year
  Sex: Male

DRUGS (1)
  1. NELFINAVIR MESYLATE [Suspect]
     Indication: HIV INFECTION

REACTIONS (2)
  - RENAL FAILURE ACUTE [None]
  - NEPHROLITHIASIS [None]
